FAERS Safety Report 16457127 (Version 1)
Quarter: 2019Q2

REPORT INFORMATION
  Report Type: Spontaneous
  Country: US (occurrence: US)
  Receive Date: 20190510
  Receipt Date: 20190510
  Transmission Date: 20190711
  Serious: No
  Sender: FDA-Public Use
  Company Number: None

PATIENT
  Age: 45 Year
  Sex: Male

DRUGS (1)
  1. MYCOPHENOLATE MOFETIL 500 MG  TABLET [Suspect]
     Active Substance: MYCOPHENOLATE MOFETIL
     Dates: start: 201705

REACTIONS (1)
  - Product use in unapproved indication [None]

NARRATIVE: CASE EVENT DATE: 20190510
